FAERS Safety Report 5502524-2 (Version None)
Quarter: 2007Q4

REPORT INFORMATION
  Report Type: 
  Country: None (occurrence: None)
  Receive Date: 20071030
  Receipt Date: 20071003
  Transmission Date: 20080405
  Serious: No
  Sender: FDA-Public Use
  Company Number: US-BOEHRINGER INGELHEIM PHARMACEUTICALS, INC.-2007-BP-22146BP

PATIENT
  Age: 69 Year
  Sex: Male

DRUGS (6)
  1. SPIRIVA [Suspect]
     Indication: CHRONIC OBSTRUCTIVE PULMONARY DISEASE
     Route: 055
     Dates: start: 20070707
  2. SIMVASTATIN [Concomitant]
  3. MIRAPEX [Concomitant]
  4. AMBIEN [Concomitant]
  5. TUMS [Concomitant]
  6. ARTIFICAL TEARS [Concomitant]
     Indication: DRY EYE

REACTIONS (1)
  - DRY EYE [None]
